FAERS Safety Report 13931197 (Version 1)
Quarter: 2017Q3

REPORT INFORMATION
  Report Type: Spontaneous
  Country: US (occurrence: US)
  Receive Date: 20170902
  Receipt Date: 20170902
  Transmission Date: 20171127
  Serious: No
  Sender: FDA-Public Use
  Company Number: US-TOLMAR, INC.-2017US004027

PATIENT
  Age: 35 Year
  Sex: Female

DRUGS (7)
  1. ELIGARD [Suspect]
     Active Substance: LEUPROLIDE ACETATE
     Indication: BREAST CANCER
     Dosage: 7.5 MG, MONTHLY
     Route: 058
     Dates: start: 20170327
  2. ATIVAN [Concomitant]
     Active Substance: LORAZEPAM
     Dosage: UNK, PRN
  3. MOTRIN [Concomitant]
     Active Substance: IBUPROFEN
  4. EFFEXOR [Concomitant]
     Active Substance: VENLAFAXINE HYDROCHLORIDE
     Dosage: UNK, PRN
  5. ELIGARD [Suspect]
     Active Substance: LEUPROLIDE ACETATE
     Indication: RENAL CANCER
  6. ESTRACE [Concomitant]
     Active Substance: ESTRADIOL
     Dosage: UNK, PRN
  7. MULTIVITAMIN                       /00097801/ [Concomitant]
     Active Substance: VITAMINS
     Dosage: UNK, PRN

REACTIONS (3)
  - Off label use [Unknown]
  - Product preparation error [Unknown]
  - Syringe issue [Unknown]

NARRATIVE: CASE EVENT DATE: 20170327
